FAERS Safety Report 4456698-5 (Version None)
Quarter: 2004Q3

REPORT INFORMATION
  Report Type: 
  Country: None (occurrence: None)
  Receive Date: 20040921
  Receipt Date: 20040908
  Transmission Date: 20050211
  Serious: Yes (Disabling)
  Sender: FDA-Public Use
  Company Number: 2004064661

PATIENT
  Age: 77 Year
  Sex: Female
  Weight: 81.6475 kg

DRUGS (4)
  1. LIPITOR [Suspect]
     Indication: BLOOD CHOLESTEROL
     Dosage: 10 MG (10 MG, 1 IN 1 D), ORAL
     Route: 048
     Dates: start: 20040119
  2. VALSARTAN (VALSARTAN) [Concomitant]
  3. AMLODOPINE BESILATE (AMLODIPINE BESILATE) [Concomitant]
  4. PANTOPRAZOLE (PANTOPRAZOLE) [Concomitant]

REACTIONS (2)
  - ABASIA [None]
  - PAIN IN EXTREMITY [None]
